FAERS Safety Report 4960370-2 (Version None)
Quarter: 2006Q1

REPORT INFORMATION
  Report Type: 
  Country: None (occurrence: None)
  Receive Date: 20060328
  Receipt Date: 20060314
  Transmission Date: 20060701
  Serious: Yes (Death, Hospitalization)
  Sender: FDA-Public Use
  Company Number: SI-2006-006119

PATIENT
  Age: 49 Year
  Sex: Female

DRUGS (1)
  1. BETAFERON (INTERFERON BETA - 1B) INJECTION, 250UG [Suspect]
     Indication: RELAPSING-REMITTING MULTIPLE SCLEROSIS
     Dates: start: 19990101

REACTIONS (10)
  - DISEASE PROGRESSION [None]
  - FACIAL PALSY [None]
  - FALL [None]
  - GENERAL PHYSICAL HEALTH DETERIORATION [None]
  - GLIOBLASTOMA [None]
  - HEMIPLEGIA [None]
  - METASTASES TO CENTRAL NERVOUS SYSTEM [None]
  - MONOPARESIS [None]
  - MULTIPLE SCLEROSIS [None]
  - NYSTAGMUS [None]
